FAERS Safety Report 25228470 (Version 1)
Quarter: 2025Q2

REPORT INFORMATION
  Report Type: Spontaneous
  Country: TW (occurrence: TW)
  Receive Date: 20250423
  Receipt Date: 20250423
  Transmission Date: 20250717
  Serious: Yes (Other)
  Sender: GILEAD
  Company Number: TW-GILEAD-2025-0710659

PATIENT
  Age: 43 Year
  Sex: Female

DRUGS (1)
  1. TRODELVY [Suspect]
     Active Substance: SACITUZUMAB GOVITECAN-HZIY
     Indication: Triple negative breast cancer
     Route: 065

REACTIONS (4)
  - Metastases to liver [Unknown]
  - Pseudocirrhosis [Unknown]
  - Hepatic cirrhosis [Unknown]
  - Metastases to pleura [Unknown]
